FAERS Safety Report 21646507 (Version 1)
Quarter: 2022Q4

REPORT INFORMATION
  Report Type: Report from Study
  Country: US (occurrence: US)
  Receive Date: 20221126
  Receipt Date: 20221126
  Transmission Date: 20230113
  Serious: No
  Sender: FDA-Public Use
  Company Number: US-ABBVIE-4182864

PATIENT
  Sex: Female

DRUGS (4)
  1. RINVOQ [Suspect]
     Active Substance: UPADACITINIB
     Indication: Rheumatoid arthritis
     Route: 048
  2. Pfizer/BioNTech [Concomitant]
     Indication: COVID-19 immunisation
     Dosage: 1ST DOSE, FREQUENCY: 1 IN ONCE
     Route: 030
     Dates: start: 20210118, end: 20210118
  3. Pfizer/BioNTech [Concomitant]
     Indication: COVID-19 immunisation
     Dosage: 2ND DOSE, FREQUENCY: 1 IN ONCE
     Route: 030
     Dates: start: 20210208, end: 20210208
  4. Pfizer/BioNTech [Concomitant]
     Indication: COVID-19 immunisation
     Dosage: 3RD DOSE, FREQUENCY: 1 IN ONCE
     Route: 030
     Dates: start: 20211109, end: 20211109

REACTIONS (2)
  - Osteoarthritis [Unknown]
  - Dry mouth [Unknown]
